FAERS Safety Report 9276747 (Version 1)
Quarter: 2013Q2

REPORT INFORMATION
  Report Type: Spontaneous
  Country: US (occurrence: None)
  Receive Date: 20130501
  Receipt Date: 20130501
  Transmission Date: 20140414
  Serious: Yes (Other)
  Sender: FDA-Public Use
  Company Number: AUR-APL-2013-02456

PATIENT
  Sex: Female

DRUGS (3)
  1. METFORMIN (METFORMIN) [Suspect]
     Indication: BLOOD GLUCOSE INCREASED
  2. GLIPIZIDE [Suspect]
     Indication: BLOOD GLUCOSE INCREASED
  3. LANTUS (INSULIN GLARGINE) [Suspect]
     Indication: BLOOD GLUCOSE INCREASED

REACTIONS (2)
  - Blood glucose increased [None]
  - Drug ineffective [None]
